FAERS Safety Report 11534519 (Version 4)
Quarter: 2015Q4

REPORT INFORMATION
  Report Type: Spontaneous
  Country: FI (occurrence: FI)
  Receive Date: 20150922
  Receipt Date: 20151013
  Transmission Date: 20160304
  Serious: Yes (Hospitalization, Other)
  Sender: FDA-Public Use
  Company Number: PHHY2015FI112082

PATIENT
  Age: 88 Year
  Sex: Female
  Weight: 60 kg

DRUGS (14)
  1. ACLASTA [Suspect]
     Active Substance: ZOLEDRONIC ACID
     Indication: OSTEOPOROSIS
     Route: 065
     Dates: start: 2011, end: 2011
  2. ACLASTA [Suspect]
     Active Substance: ZOLEDRONIC ACID
     Dosage: UNK
     Route: 065
     Dates: start: 20130416, end: 20130416
  3. SPIRESIS [Concomitant]
     Active Substance: SPIRONOLACTONE
     Indication: DIURETIC THERAPY
     Dosage: 0.5 DF, QD
     Route: 065
  4. RAMIPRIL. [Concomitant]
     Active Substance: RAMIPRIL
     Indication: HYPERTENSION
     Dosage: 0.5 DF, BID
     Route: 065
  5. EMCONCOR [Concomitant]
     Active Substance: BISOPROLOL FUMARATE
     Indication: PRODUCT USED FOR UNKNOWN INDICATION
     Dosage: 1 DF, BID
     Route: 065
  6. ACLASTA [Suspect]
     Active Substance: ZOLEDRONIC ACID
     Dosage: UNK
     Route: 065
     Dates: start: 20120402, end: 20120402
  7. IMOVANE [Concomitant]
     Active Substance: ZOPICLONE
     Indication: SEDATIVE THERAPY
     Dosage: UNK
     Route: 065
  8. PANACOD [Concomitant]
     Active Substance: ACETAMINOPHEN\CODEINE PHOSPHATE
     Indication: PRODUCT USED FOR UNKNOWN INDICATION
     Dosage: UNK
     Route: 065
     Dates: start: 20150202
  9. PLAVIX [Concomitant]
     Active Substance: CLOPIDOGREL BISULFATE
     Indication: ANTICOAGULANT THERAPY
     Dosage: UNK
     Route: 065
     Dates: start: 20120611, end: 20121207
  10. SOMAC [Concomitant]
     Active Substance: PANTOPRAZOLE SODIUM
     Indication: PRODUCT USED FOR UNKNOWN INDICATION
     Route: 065
  11. KALCIPOS D3 [Concomitant]
     Indication: PRODUCT USED FOR UNKNOWN INDICATION
     Dosage: UNK
     Route: 065
  12. PAMOL [Concomitant]
     Active Substance: ACETAMINOPHEN
     Indication: PAIN
     Dosage: 1 DF, BID (1 TABLET TWICE A DAY AND ADDITIONAL ONE TABLET DURING THE DAY, IF PAIN OCCURED)
     Route: 065
  13. CITALOPRAM [Concomitant]
     Active Substance: CITALOPRAM HYDROBROMIDE
     Indication: PRODUCT USED FOR UNKNOWN INDICATION
     Dosage: UNK
     Route: 065
     Dates: start: 20120618, end: 201212
  14. FURESIS [Concomitant]
     Active Substance: FUROSEMIDE
     Indication: DIURETIC THERAPY
     Dosage: 0.5 DF, QD
     Route: 065

REACTIONS (18)
  - Balance disorder [Not Recovered/Not Resolved]
  - Joint stiffness [Not Recovered/Not Resolved]
  - Injection site erythema [Recovered/Resolved]
  - Concomitant disease aggravated [Not Recovered/Not Resolved]
  - Dizziness [Not Recovered/Not Resolved]
  - Myalgia [Not Recovered/Not Resolved]
  - Muscle disorder [Not Recovered/Not Resolved]
  - Dysstasia [Unknown]
  - Contusion [Unknown]
  - Muscle spasms [Not Recovered/Not Resolved]
  - Decreased appetite [Recovered/Resolved]
  - Fall [Unknown]
  - Weight decreased [Unknown]
  - Feeling cold [Not Recovered/Not Resolved]
  - Arthralgia [Not Recovered/Not Resolved]
  - Cough [Unknown]
  - Pulmonary embolism [Recovered/Resolved]
  - Diarrhoea [Recovered/Resolved]

NARRATIVE: CASE EVENT DATE: 2011
